FAERS Safety Report 9912080 (Version 1)
Quarter: 2014Q1

REPORT INFORMATION
  Report Type: Report from Study
  Country: US (occurrence: US)
  Receive Date: 20140219
  Receipt Date: 20140219
  Transmission Date: 20141002
  Serious: Yes (Hospitalization)
  Sender: FDA-Public Use
  Company Number: US-BRISTOL-MYERS SQUIBB COMPANY-20188017

PATIENT
  Age: 4 Year
  Sex: Female
  Weight: 17.7 kg

DRUGS (18)
  1. DASATINIB [Suspect]
     Indication: ACUTE LYMPHOCYTIC LEUKAEMIA
     Dosage: INTERRUPTED ON 06FEB2014?RESTARTED ON 10FEB2014?60 MG/M2
     Route: 048
     Dates: start: 20140103
  2. METHOTREXATE [Suspect]
     Dosage: METHOTREXATE(IT) (12 MG) WAS GIVEN ON 27DEC2013,17JAN2014, 24JAN14, PER PROTOCOL HELD AFT 24JAN14
     Route: 037
     Dates: start: 20131227
  3. MERCAPTOPURINE [Concomitant]
     Indication: CHEMOTHERAPY
     Dosage: 50(M-F), 25(S+S)MG
     Route: 048
     Dates: start: 20140122
  4. CYTARABINE [Concomitant]
     Indication: CHEMOTHERAPY
     Dosage: 70MG:20DEC13-20DEC13?55MG:24JAN2014-27JAN14?50MG:31JAN-5FEB14,10FEB-13FEB14.
     Route: 042
     Dates: start: 20131220, end: 20140203
  5. CYCLOPHOSPHAMIDE [Concomitant]
     Indication: CHEMOTHERAPY
     Route: 042
     Dates: start: 20140122
  6. ONDANSETRON [Concomitant]
     Indication: NAUSEA
     Dosage: 3MG IV:QD:24DEC-27DEC13 PRN?4MG PO24DEC13-CONT?3MG IV:31JAN14-CONT
     Route: 042
     Dates: start: 20131224
  7. ONDANSETRON [Concomitant]
     Indication: VOMITING
     Dosage: 3MG IV:QD:24DEC-27DEC13 PRN?4MG PO24DEC13-CONT?3MG IV:31JAN14-CONT
     Route: 042
     Dates: start: 20131224
  8. MORPHINE [Concomitant]
     Indication: ANALGESIC THERAPY
     Route: 042
     Dates: start: 20140124
  9. ZANTAC [Concomitant]
     Indication: PROPHYLAXIS
     Dosage: 18DEC13-24DEC13:15.25MG IV QD 2.5MG/ML?75MG/5ML:4ML PO 24DEC13-ONG
     Route: 048
     Dates: start: 20131218
  10. BACTRIM [Concomitant]
     Indication: PROPHYLAXIS
     Dosage: BACTRIM 8MG/ML SUSPENSION?40MG BID ON SAT,SUN, FRI
     Route: 048
     Dates: start: 20131227
  11. ALLOPURINOL [Concomitant]
     Indication: PROPHYLAXIS
     Dosage: STRENGTH:20 MG/ML?20DEC13-24DEC13:60MG?24DEC13-ONG:40MG
     Route: 048
     Dates: start: 20131220
  12. ACETAMINOPHEN [Concomitant]
     Indication: ANALGESIC THERAPY
     Dosage: ACETAMINOPHEN 160MG/5CC:24DEC13-21JAN14?03JAN2014-CONT
     Route: 048
     Dates: start: 20131224
  13. ACETAMINOPHEN [Concomitant]
     Indication: ANTIPYRESIS
     Dosage: ACETAMINOPHEN 160MG/5CC:24DEC13-21JAN14?03JAN2014-CONT
     Route: 048
     Dates: start: 20131224
  14. PROPOFOL [Concomitant]
     Indication: SEDATION
     Dosage: 30MG:IVX2,50MG IVX2:17JAN2014?10MG/ML IV CONT INF:06FEB2014
     Route: 042
     Dates: start: 20140117
  15. NYSTATIN [Concomitant]
     Indication: ORAL DISORDER
     Dosage: NYSTATIN 100000 UNITS/ML
     Route: 048
     Dates: start: 20140124
  16. EMLA [Concomitant]
     Indication: CATHETER SITE PAIN
     Dosage: EMLA CREAM
     Route: 061
     Dates: start: 20140127
  17. TYLENOL + CODEINE [Concomitant]
     Indication: PAIN
     Dosage: 1 DF:MG/5CC PRN FOR
     Route: 048
     Dates: start: 20140117
  18. IBUPROFEN [Concomitant]
     Indication: PAIN
     Dosage: 100 MG/5CC 7.5 ML
     Route: 048

REACTIONS (1)
  - Delirium [Recovered/Resolved]
